FAERS Safety Report 4580266-8 (Version None)
Quarter: 2005Q1

REPORT INFORMATION
  Report Type: 
  Country: None (occurrence: None)
  Receive Date: 20050214
  Receipt Date: 20050202
  Transmission Date: 20050727
  Serious: Yes (Death)
  Sender: FDA-Public Use
  Company Number: DZ-GLAXOSMITHKLINE-B0370878A

PATIENT
  Age: 69 Year
  Sex: Female

DRUGS (2)
  1. SEREVENT [Suspect]
     Indication: ASTHMA
     Dosage: 2U TWICE PER DAY
     Route: 055
     Dates: start: 20030430
  2. BECLOMETHASONE DIPROPIONATE [Concomitant]
     Route: 065

REACTIONS (3)
  - CHEST PAIN [None]
  - COUGH [None]
  - DEATH [None]
